FAERS Safety Report 8414507-3 (Version None)
Quarter: 2012Q2

REPORT INFORMATION
  Report Type: 
  Country: None (occurrence: None)
  Receive Date: 20120605
  Receipt Date: 20120516
  Transmission Date: 20120825
  Serious: No
  Sender: FDA-Public Use
  Company Number: VE-PFIZER INC-2012121073

PATIENT
  Age: 62 Year
  Sex: Female

DRUGS (1)
  1. LIPITOR [Suspect]
     Indication: CEREBROVASCULAR ACCIDENT
     Dosage: 80 MG, 1X/DAY
     Route: 048
     Dates: start: 20110611

REACTIONS (1)
  - NO ADVERSE EVENT [None]
